FAERS Safety Report 13408630 (Version 3)
Quarter: 2022Q3

REPORT INFORMATION
  Report Type: Spontaneous
  Country: US (occurrence: US)
  Receive Date: 20170406
  Receipt Date: 20220927
  Transmission Date: 20221026
  Serious: No
  Sender: FDA-Public Use
  Company Number: US-JNJFOC-20170225109

PATIENT
  Sex: Male

DRUGS (4)
  1. RISPERDAL [Suspect]
     Active Substance: RISPERIDONE
     Indication: Autism spectrum disorder
     Dosage: STARTED ON RISPERIDONE 0.5 MG WHICH WAS GRADUALLY INCREASED TO 1 MG PER DAY
     Route: 048
     Dates: start: 20011113, end: 20011212
  2. RISPERDAL [Suspect]
     Active Substance: RISPERIDONE
     Indication: Attention deficit hyperactivity disorder
     Route: 048
     Dates: start: 20020905, end: 20030411
  3. RISPERDAL [Suspect]
     Active Substance: RISPERIDONE
     Indication: Oppositional defiant disorder
     Route: 048
     Dates: start: 20030411
  4. RISPERDAL [Suspect]
     Active Substance: RISPERIDONE
     Indication: Autism spectrum disorder

REACTIONS (2)
  - Emotional disorder [Unknown]
  - Gynaecomastia [Unknown]
